FAERS Safety Report 7977361-X (Version None)
Quarter: 2011Q4

REPORT INFORMATION
  Report Type: 
  Country: None (occurrence: None)
  Receive Date: 20111213
  Receipt Date: 20111031
  Transmission Date: 20120403
  Serious: Yes (Other)
  Sender: FDA-Public Use
  Company Number: PHEH2011US08159

PATIENT
  Sex: Male

DRUGS (1)
  1. DIOVAN HCT [Suspect]
     Dosage: 80 MG VALS/12.5 MG HCT
     Dates: end: 20110809

REACTIONS (5)
  - ACCIDENT AT WORK [None]
  - JOINT SWELLING [None]
  - ARTHRITIS [None]
  - INJURY [None]
  - BLOOD PRESSURE INCREASED [None]
